FAERS Safety Report 4501745-5 (Version None)
Quarter: 2004Q4

REPORT INFORMATION
  Report Type: 
  Country: None (occurrence: None)
  Receive Date: 20041115
  Receipt Date: 20041115
  Transmission Date: 20050328
  Serious: No
  Sender: FDA-Public Use
  Company Number: None

PATIENT
  Age: 9 Year
  Sex: Male
  Weight: 32.5 kg

DRUGS (4)
  1. CARBOPLATIN [Suspect]
     Indication: ASTROCYTOMA
     Dosage: 190MG    OVER 1 HOUR    INTRAVENOUS
     Route: 042
     Dates: start: 20041108, end: 20041108
  2. COLACE [Concomitant]
  3. BACTRIM [Concomitant]
  4. PROCRIT [Concomitant]

REACTIONS (4)
  - PARAESTHESIA ORAL [None]
  - PRURITUS [None]
  - RASH ERYTHEMATOUS [None]
  - RASH PRURITIC [None]
